FAERS Safety Report 12258764 (Version 1)
Quarter: 2016Q2

REPORT INFORMATION
  Report Type: Spontaneous
  Country: US (occurrence: US)
  Receive Date: 20160412
  Receipt Date: 20160412
  Transmission Date: 20160815
  Serious: No
  Sender: FDA-Public Use
  Company Number: US-SA-2015SA058586

PATIENT
  Age: 69 Year
  Sex: Female

DRUGS (1)
  1. ALLEGRA [Suspect]
     Active Substance: FEXOFENADINE HYDROCHLORIDE
     Indication: MULTIPLE ALLERGIES
     Dosage: START DATE WAS MENTIONED AS LAST FRIDAY?DOSE AND FREQUENCY WAS MENTIONED AS 1/2 TABLET DAILY
     Route: 048

REACTIONS (3)
  - Cough [Unknown]
  - Sleep disorder [Unknown]
  - Wrong technique in product usage process [Unknown]
